FAERS Safety Report 12992341 (Version 1)
Quarter: 2016Q4

REPORT INFORMATION
  Report Type: Spontaneous
  Country: US (occurrence: US)
  Receive Date: 20161202
  Receipt Date: 20161202
  Transmission Date: 20170207
  Serious: No
  Sender: FDA-Public Use
  Company Number: US-AUROBINDO-AUR-APL-2016-05817

PATIENT
  Sex: Female

DRUGS (1)
  1. FLUCONAZOLE TABLETS [Suspect]
     Active Substance: FLUCONAZOLE
     Indication: RASH
     Route: 065

REACTIONS (4)
  - Incoherent [Unknown]
  - Feeling abnormal [Unknown]
  - Irritability [Unknown]
  - Drug ineffective [Unknown]
